FAERS Safety Report 10103142 (Version 2)
Quarter: 2014Q2

REPORT INFORMATION
  Report Type: Spontaneous
  Country: US (occurrence: US)
  Receive Date: 20140424
  Receipt Date: 20140424
  Transmission Date: 20141212
  Serious: No
  Sender: FDA-Public Use
  Company Number: US-BRISTOL-MYERS SQUIBB COMPANY-20124160

PATIENT
  Age: 80 Year
  Sex: Female

DRUGS (6)
  1. ELIQUIS [Suspect]
     Indication: CEREBROVASCULAR ACCIDENT PROPHYLAXIS
     Dosage: ON 23JAN14:2.5 MGBID
     Route: 048
     Dates: start: 20140104, end: 20140128
  2. FAMOTIDINE [Concomitant]
  3. LEXAPRO [Concomitant]
  4. LISINOPRIL [Concomitant]
  5. SYNTHROID [Concomitant]
  6. VITAMIN D3 [Concomitant]

REACTIONS (1)
  - Diarrhoea [Unknown]
